FAERS Safety Report 4776589-X (Version None)
Quarter: 2005Q3

REPORT INFORMATION
  Report Type: 
  Country: None (occurrence: None)
  Receive Date: 20050921
  Receipt Date: 20050912
  Transmission Date: 20060218
  Serious: Yes (Other)
  Sender: FDA-Public Use
  Company Number: 2005126379

PATIENT
  Age: 76 Year
  Sex: Male
  Weight: 80.7403 kg

DRUGS (7)
  1. LIPITOR [Suspect]
     Indication: BLOOD CHOLESTEROL INCREASED
     Dosage: 1 IN 1 D
     Dates: start: 19970101, end: 20050101
  2. LEVAQUIN [Suspect]
     Indication: PROPHYLAXIS
  3. LISINOPRIL [Concomitant]
  4. METOPROLOL TARTRATE [Concomitant]
  5. CARDIZEM (DILGIAZEM HYDROCHLORIDE) [Concomitant]
  6. ACETYLSALICYLIC ACID SRT [Concomitant]
  7. CENTRUM SILVER (ASCORBIC ACID, CALCIUM, MINERALS NOS, RETINOL, TOCOPHE [Concomitant]

REACTIONS (12)
  - ANXIETY [None]
  - ARTERIAL OCCLUSIVE DISEASE [None]
  - BENIGN NEOPLASM OF BLADDER [None]
  - BLADDER CANCER [None]
  - DOCUMENTED HYPERSENSITIVITY TO ADMINISTERED DRUG [None]
  - ERECTILE DYSFUNCTION [None]
  - ERYTHEMA [None]
  - OEDEMA [None]
  - POST PROCEDURAL COMPLICATION [None]
  - PRURITUS [None]
  - RESPIRATORY ARREST [None]
  - SKIN HAEMORRHAGE [None]
